FAERS Safety Report 23719278 (Version 2)
Quarter: 2024Q3

REPORT INFORMATION
  Report Type: Spontaneous
  Country: US (occurrence: US)
  Receive Date: 20240408
  Receipt Date: 20240709
  Transmission Date: 20241016
  Serious: No
  Sender: AMARIN
  Company Number: US-Amarin Pharma  Inc-2024AMR000132

PATIENT
  Age: 72 Year
  Sex: Female

DRUGS (4)
  1. VASCEPA [Suspect]
     Active Substance: ICOSAPENT ETHYL
     Indication: Weight increased
     Dosage: 2 GRAMS PER DAY
     Route: 065
     Dates: start: 202403
  2. VASCEPA [Suspect]
     Active Substance: ICOSAPENT ETHYL
     Dosage: 4 GRAMS PER DAY
     Route: 065
     Dates: start: 2024
  3. VASCEPA [Suspect]
     Active Substance: ICOSAPENT ETHYL
     Dosage: 6 GRAMS PER DAY
     Route: 065
     Dates: start: 2024
  4. FLUOROURACIL\IRINOTECAN\LEUCOVORIN\OXALIPLATIN [Concomitant]
     Active Substance: FLUOROURACIL\IRINOTECAN\LEUCOVORIN\OXALIPLATIN
     Indication: Product used for unknown indication
     Dosage: FOR EVERY 2 WEEKS

REACTIONS (5)
  - Hypotension [Recovered/Resolved]
  - Off label use [Unknown]
  - Prescription drug used without a prescription [Unknown]
  - Incorrect dose administered [Unknown]
  - Therapeutic response unexpected [Unknown]

NARRATIVE: CASE EVENT DATE: 20240301
